FAERS Safety Report 7703841-8 (Version None)
Quarter: 2011Q3

REPORT INFORMATION
  Report Type: 
  Country: None (occurrence: None)
  Receive Date: 20110823
  Receipt Date: 20110722
  Transmission Date: 20111222
  Serious: No
  Sender: FDA-Public Use
  Company Number: US-BAYER-2011-074566

PATIENT
  Age: 70 Year
  Sex: Male

DRUGS (11)
  1. OMEPRAZOLE [Concomitant]
  2. LEUKINE [Suspect]
     Indication: CROHN'S DISEASE
     Dosage: 250 ?G, UNK
     Dates: start: 20110721
  3. CALCIUM CARBONATE [Concomitant]
  4. POTASSIUM [Concomitant]
  5. PENTASA [Concomitant]
  6. VITAMIN D [Concomitant]
  7. LEVOTHYROXINE SODIUM [Concomitant]
  8. MULTI-VITAMIN [Concomitant]
  9. LEUKINE [Suspect]
     Indication: MALIGNANT MELANOMA
     Dosage: UNK ?G, UNK
     Dates: start: 20110630
  10. TIMOLOL MALEATE [Concomitant]
  11. GLUCOSAMINE W/CHONDROITIN SULFATE [Concomitant]

REACTIONS (3)
  - CHILLS [None]
  - NAUSEA [None]
  - CHEST PAIN [None]
